FAERS Safety Report 7228126-8 (Version None)
Quarter: 2011Q1

REPORT INFORMATION
  Report Type: 
  Country: None (occurrence: None)
  Receive Date: 20110114
  Receipt Date: 20110112
  Transmission Date: 20110831
  Serious: Yes (Death, Hospitalization, Other)
  Sender: FDA-Public Use
  Company Number: DE-CEPHALON-2011000176

PATIENT
  Sex: Female

DRUGS (4)
  1. RITUXIMAB [Concomitant]
     Indication: CHRONIC LYMPHOCYTIC LEUKAEMIA
  2. BENDAMUSTINE HCL [Suspect]
     Indication: CHRONIC LYMPHOCYTIC LEUKAEMIA
     Route: 042
     Dates: start: 20080101
  3. NEULASTA [Suspect]
     Indication: CHEMOTHERAPY
     Route: 058
     Dates: start: 20080606
  4. ANTIBIOTICS [Suspect]

REACTIONS (10)
  - NEUTROPHIL TOXIC GRANULATION PRESENT [None]
  - DYSPNOEA [None]
  - CHRONIC LYMPHOCYTIC LEUKAEMIA [None]
  - PLEURAL EFFUSION [None]
  - LYMPHOMA [None]
  - PNEUMONIA [None]
  - NEUTROPENIA [None]
  - COUGH [None]
  - DRUG INEFFECTIVE [None]
  - DIARRHOEA [None]
